FAERS Safety Report 18372687 (Version 3)
Quarter: 2020Q4

REPORT INFORMATION
  Report Type: Report from Study
  Country: CA (occurrence: CA)
  Receive Date: 20201012
  Receipt Date: 20201130
  Transmission Date: 20210114
  Serious: Yes (Death, Hospitalization, Other)
  Sender: FDA-Public Use
  Company Number: CA-TAKEDA-2020TUS034571

PATIENT
  Age: 77 Year
  Sex: Male

DRUGS (1)
  1. VEDOLIZUMAB [Suspect]
     Active Substance: VEDOLIZUMAB
     Indication: CROHN^S DISEASE
     Dosage: 300 MILLIGRAM
     Route: 042
     Dates: start: 20200310, end: 20200811

REACTIONS (7)
  - Blood electrolytes abnormal [Unknown]
  - Death [Fatal]
  - Cardiac disorder [Unknown]
  - Oedema [Unknown]
  - Blood pressure abnormal [Unknown]
  - Decreased appetite [Unknown]
  - Protein total abnormal [Unknown]
